FAERS Safety Report 6211944-2 (Version None)
Quarter: 2009Q2

REPORT INFORMATION
  Report Type: 
  Country: None (occurrence: None)
  Receive Date: 20090602
  Receipt Date: 20090521
  Transmission Date: 20091009
  Serious: Yes (Other)
  Sender: FDA-Public Use
  Company Number: US-AVENTIS-200914402US

PATIENT
  Sex: Female

DRUGS (21)
  1. LANTUS [Suspect]
     Dosage: DOSE: 20 UNITS
     Route: 058
  2. OPTICLIK (INSULIN INJECTION PEN) [Suspect]
     Dates: start: 20080101
  3. EFFEXOR [Concomitant]
     Dosage: DOSE: 1 TAB
  4. VITAMIN B12 AMINO [Concomitant]
     Dosage: DOSE: 1 SHOT
  5. FERREX [Concomitant]
     Dosage: DOSE: 1 TAB
  6. ADVAIR HFA [Concomitant]
     Dosage: DOSE: 2 PUFFS
  7. NOVOLOG [Concomitant]
     Dosage: DOSE: PER SLIDING SCALE WITH MEALS
  8. AVALIDE [Concomitant]
     Dosage: DOSE: 1 TAB
  9. ASPIRIN [Concomitant]
     Dosage: DOSE: 1 TAB
  10. AGGRENOX [Concomitant]
     Dosage: DOSE: 2 TABS
  11. PLAVIX [Concomitant]
     Dosage: DOSE: 1 TAB
  12. ATENOLOL [Concomitant]
     Dosage: DOSE: 1 TAB
  13. MAGNESIUM SULFATE [Concomitant]
     Dosage: DOSE: 1 TAB
  14. ALBUTEROL [Concomitant]
     Dosage: DOSE: 4 TIMES PER DAY VIA NEBULIZER
  15. FLONASE [Concomitant]
     Dosage: DOSE: 2 PUFFS
  16. LASIX [Concomitant]
     Dosage: DOSE: 1 TAB
     Route: 048
  17. FISH OIL [Concomitant]
     Dosage: DOSE: 1 TAB
     Route: 048
  18. LIPITOR [Concomitant]
     Dosage: DOSE: 1 TAB
     Route: 048
  19. NEXIUM [Concomitant]
     Dosage: DOSE: 1 TAB
     Route: 048
  20. POTASSIUM CHLORIDE [Concomitant]
     Dosage: DOSE: 1 TAB
     Route: 048
  21. METFORMIN HYDROCHLORIDE [Concomitant]
     Dosage: DOSE: 1 TAB
     Route: 048

REACTIONS (3)
  - EYE HAEMORRHAGE [None]
  - MACULAR DEGENERATION [None]
  - TRANSIENT ISCHAEMIC ATTACK [None]
